FAERS Safety Report 8900819 (Version 1)
Quarter: 2012Q4

REPORT INFORMATION
  Report Type: 
  Country: CA (occurrence: CA)
  Receive Date: 20121109
  Receipt Date: 20121109
  Transmission Date: 20130627
  Serious: Yes (Hospitalization, Other)
  Sender: FDA-Public Use
  Company Number: PHMT2007CA00780

PATIENT
  Sex: Male

DRUGS (5)
  1. SANDOSTATIN LAR [Suspect]
     Indication: CARCINOID TUMOUR
     Dosage: 20 mg every 4 weeks
     Route: 030
     Dates: start: 20060622
  2. SANDOSTATIN LAR [Suspect]
     Dosage: 30 mg, every 4 weeks
  3. COVERSIL [Concomitant]
  4. PRAVACOL [Concomitant]
  5. LASIX [Concomitant]

REACTIONS (8)
  - Pyrexia [Not Recovered/Not Resolved]
  - Heart rate decreased [Unknown]
  - Blood pressure decreased [Unknown]
  - Flushing [Not Recovered/Not Resolved]
  - Diarrhoea [Unknown]
  - Dizziness [Unknown]
  - Abdominal distension [Not Recovered/Not Resolved]
  - Abdominal pain [Unknown]
